FAERS Safety Report 7413263-5 (Version None)
Quarter: 2011Q2

REPORT INFORMATION
  Report Type: 
  Country: None (occurrence: None)
  Receive Date: 20110413
  Receipt Date: 20110411
  Transmission Date: 20111010
  Serious: Yes (Disabling, Other)
  Sender: FDA-Public Use
  Company Number: US-PFIZER INC-2011012934

PATIENT
  Sex: Female

DRUGS (3)
  1. CHANTIX [Suspect]
     Indication: SMOKING CESSATION THERAPY
     Dosage: UNK
     Dates: start: 20081001, end: 20090201
  2. CYMBALTA [Concomitant]
     Indication: DEPRESSION
     Dosage: UNK
     Dates: start: 20070301
  3. CYMBALTA [Concomitant]
     Indication: BIPOLAR DISORDER

REACTIONS (5)
  - AGGRESSION [None]
  - SUICIDAL BEHAVIOUR [None]
  - DEPRESSION [None]
  - ANXIETY [None]
  - BIPOLAR DISORDER [None]
